FAERS Safety Report 5856732-1 (Version None)
Quarter: 2008Q3

REPORT INFORMATION
  Report Type: 
  Country: None (occurrence: None)
  Receive Date: 20080822
  Receipt Date: 20080822
  Transmission Date: 20090109
  Serious: Yes (Disabling)
  Sender: FDA-Public Use
  Company Number: None

PATIENT
  Age: 82 Year
  Sex: Female
  Weight: 46.7205 kg

DRUGS (1)
  1. PLAVIX [Suspect]
     Indication: GASTRIC ULCER HAEMORRHAGE
     Dosage: 1 TAB ONCE A DAY PO
     Route: 048
     Dates: start: 20080702, end: 20080705

REACTIONS (1)
  - CONFUSIONAL STATE [None]
